FAERS Safety Report 8905527 (Version 1)
Quarter: 2012Q4

REPORT INFORMATION
  Report Type: 
  Country: NL (occurrence: NL)
  Receive Date: 20121109
  Receipt Date: 20121109
  Transmission Date: 20130627
  Serious: Yes (Death)
  Sender: FDA-Public Use
  Company Number: NL-BAXTER-2012BAX020953

PATIENT
  Age: 65 Year
  Sex: Male

DRUGS (4)
  1. EXTRANEAL [Suspect]
     Indication: RENAL INSUFFICIENCY
     Route: 033
  2. EXTRANEAL [Suspect]
     Indication: KIDNEY STONE
  3. PHYSIONEAL 40 GLUCOSE 1.36% W/V / 13.6 MG/ML [Suspect]
     Indication: RENAL INSUFFICIENCY
     Route: 033
  4. PHYSIONEAL 40 GLUCOSE 1.36% W/V / 13.6 MG/ML [Suspect]
     Indication: KIDNEY STONE

REACTIONS (2)
  - Sudden death [Fatal]
  - Cardiac disorder [None]
